FAERS Safety Report 10222720 (Version 2)
Quarter: 2014Q2

REPORT INFORMATION
  Report Type: Spontaneous
  Country: JP (occurrence: JP)
  Receive Date: 20140606
  Receipt Date: 20140627
  Transmission Date: 20141212
  Serious: Yes (Other)
  Sender: FDA-Public Use
  Company Number: JP-ABBVIE-14P-087-1243127-00

PATIENT
  Age: 81 Year
  Sex: Male
  Weight: 46 kg

DRUGS (8)
  1. SEVOFLURANE [Suspect]
     Indication: MAINTENANCE OF ANAESTHESIA
  2. LEVOBUPIVACAINE [Suspect]
     Indication: EPIDURAL ANAESTHESIA
     Route: 008
  3. REMIFENTANIL [Suspect]
     Indication: INDUCTION OF ANAESTHESIA
  4. REMIFENTANIL [Suspect]
     Indication: MAINTENANCE OF ANAESTHESIA
  5. PROPOFOL [Suspect]
     Indication: INDUCTION OF ANAESTHESIA
  6. LIDOCAINE [Suspect]
     Indication: EPIDURAL ANAESTHESIA
     Route: 008
  7. FENTANYL [Suspect]
     Indication: EPIDURAL ANAESTHESIA
     Route: 008
  8. ROCURONIUM [Concomitant]
     Indication: NEUROMUSCULAR BLOCKADE

REACTIONS (2)
  - Cardiac arrest [Recovered/Resolved]
  - Bradycardia [Recovered/Resolved]
